FAERS Safety Report 4893189-1 (Version None)
Quarter: 2005Q4

REPORT INFORMATION
  Report Type: 
  Country: None (occurrence: None)
  Receive Date: 20051223
  Receipt Date: 20050902
  Transmission Date: 20060501
  Serious: No
  Sender: FDA-Public Use
  Company Number: 2005PV001748

PATIENT
  Age: 67 Year
  Sex: Male
  Weight: 134.2647 kg

DRUGS (22)
  1. SYMLIN [Suspect]
     Indication: DIABETES MELLITUS NON-INSULIN-DEPENDENT
     Dosage: 120 MCG;TID;SC
     Route: 058
     Dates: start: 20050801, end: 20051024
  2. SYMLIN [Suspect]
     Indication: DIABETES MELLITUS NON-INSULIN-DEPENDENT
     Dosage: 120 MCG;TID;SC
     Route: 058
     Dates: start: 20051027
  3. SYMLIN [Suspect]
     Indication: DIABETES MELLITUS NON-INSULIN-DEPENDENT
     Dosage: 5 MCG;BID;SC
     Route: 058
     Dates: start: 20051024, end: 20051026
  4. HUMALOG [Concomitant]
  5. AVANDIA [Concomitant]
  6. GLUCOPHAGE [Concomitant]
  7. EPIDURAL [Concomitant]
  8. MEDROL [Concomitant]
  9. COREG [Concomitant]
  10. IMDUR [Concomitant]
  11. FUROSEMIDE [Concomitant]
  12. ALLOPURINOL [Concomitant]
  13. VYTORIN [Concomitant]
  14. LISINOPRIL [Concomitant]
  15. ASPIRIN [Concomitant]
  16. ESTER-C [Concomitant]
  17. VITAMIN E [Concomitant]
  18. FISH OIL [Concomitant]
  19. NIACIN [Concomitant]
  20. VITAMIN B6 [Concomitant]
  21. MULTIVITAMIN [Concomitant]
  22. SAW PALMETTO [Concomitant]

REACTIONS (3)
  - ANOREXIA [None]
  - BLOOD GLUCOSE INCREASED [None]
  - WEIGHT DECREASED [None]
